FAERS Safety Report 9876378 (Version 1)
Quarter: 2014Q1

REPORT INFORMATION
  Report Type: Other
  Country: US (occurrence: US)
  Receive Date: 20140206
  Receipt Date: 20140206
  Transmission Date: 20141002
  Serious: No
  Sender: FDA-Public Use
  Company Number: US-ACORDA-ACO_38178_2013

PATIENT
  Sex: Female

DRUGS (3)
  1. AMPYRA [Suspect]
     Indication: PERONEAL NERVE PALSY
     Dosage: 10 MG, BID
     Route: 065
     Dates: start: 2010
  2. COPAXONE [Concomitant]
     Indication: PRODUCT USED FOR UNKNOWN INDICATION
     Dosage: UNK
  3. TROSPIUM CHLORIDE [Concomitant]
     Indication: POLLAKIURIA
     Dosage: UNK

REACTIONS (2)
  - Fatigue [Unknown]
  - Gait disturbance [Unknown]
